FAERS Safety Report 16336768 (Version 1)
Quarter: 2019Q2

REPORT INFORMATION
  Report Type: Spontaneous
  Country: FI (occurrence: FI)
  Receive Date: 20190521
  Receipt Date: 20190521
  Transmission Date: 20190711
  Serious: Yes (Hospitalization)
  Sender: FDA-Public Use
  Company Number: FI-BAYER-2019-093734

PATIENT
  Age: 52 Year
  Sex: Female

DRUGS (8)
  1. CETIRIZIN-RATIOPHARM [Concomitant]
     Dosage: 10 MG, QD
     Route: 048
  2. CIPROXIN 500 MG [Suspect]
     Active Substance: CIPROFLOXACIN
     Indication: URINARY TRACT INFECTION
     Dosage: 1 G, QD
     Route: 048
     Dates: start: 20170924, end: 20171001
  3. INNOVAIR [Concomitant]
     Active Substance: BECLOMETHASONE DIPROPIONATE\FORMOTEROL
     Dosage: 2 DF, QD
     Route: 055
  4. MELATONIN [Concomitant]
     Active Substance: MELATONIN
     Dosage: UNK, PRN
     Route: 048
  5. IBUMAX [Concomitant]
     Active Substance: IBUPROFEN
     Dosage: UNK, PRN
     Route: 048
  6. OXYNORM [Concomitant]
     Active Substance: OXYCODONE HYDROCHLORIDE
     Dosage: UNK, PRN
     Route: 048
  7. NORFLEX [Concomitant]
     Active Substance: ORPHENADRINE CITRATE
     Dosage: UNK, PRN
     Route: 048
  8. PAMOL [Concomitant]
     Active Substance: ACETAMINOPHEN
     Dosage: UNK, PRN
     Route: 048

REACTIONS (6)
  - Tenodesis [Unknown]
  - Tendonitis [Unknown]
  - Tendon rupture [Unknown]
  - Post procedural infection [Unknown]
  - Periarthritis [Unknown]
  - Arthralgia [Unknown]

NARRATIVE: CASE EVENT DATE: 20170924
